FAERS Safety Report 25601013 (Version 2)
Quarter: 2025Q3

REPORT INFORMATION
  Report Type: Spontaneous
  Country: EU (occurrence: EU)
  Receive Date: 20250724
  Receipt Date: 20250815
  Transmission Date: 20251021
  Serious: Yes (Other)
  Sender: ALEXION PHARMACEUTICALS
  Company Number: None

PATIENT
  Age: 67 Year
  Sex: Female
  Weight: 72 kg

DRUGS (1)
  1. ROSUVASTATIN [Suspect]
     Active Substance: ROSUVASTATIN
     Indication: Low density lipoprotein increased

REACTIONS (9)
  - Palpitations [Recovered/Resolved]
  - Dyspnoea exertional [Recovered/Resolved]
  - Tinnitus [Recovered/Resolved]
  - Paraesthesia [Recovered/Resolved]
  - Blood pressure systolic increased [Recovered/Resolved]
  - Panic reaction [Recovered/Resolved]
  - Depression [Recovered/Resolved]
  - Agoraphobia [Recovered/Resolved]
  - Nightmare [Recovered/Resolved]

NARRATIVE: CASE EVENT DATE: 20250220
